FAERS Safety Report 7979784-1 (Version None)
Quarter: 2011Q4

REPORT INFORMATION
  Report Type: 
  Country: None (occurrence: None)
  Receive Date: 20111214
  Receipt Date: 20111130
  Transmission Date: 20120403
  Serious: Yes (Hospitalization)
  Sender: FDA-Public Use
  Company Number: CA-ROCHE-1015374

PATIENT
  Sex: Female

DRUGS (7)
  1. SYMBICORT [Concomitant]
  2. XOLAIR [Suspect]
     Route: 058
     Dates: start: 20110517
  3. XOLAIR [Suspect]
     Dates: start: 20110921
  4. ALBUTEROL SULFATE AUTOHALER [Concomitant]
  5. CYMBALTA [Concomitant]
     Indication: PRODUCT USED FOR UNKNOWN INDICATION
  6. XOLAIR [Suspect]
     Indication: ASTHMA
     Route: 058
     Dates: start: 20080101
  7. NAPROXEN [Concomitant]

REACTIONS (11)
  - NASOPHARYNGITIS [None]
  - INCORRECT DRUG ADMINISTRATION RATE [None]
  - INJECTION SITE PAIN [None]
  - INFLUENZA [None]
  - HYPERTENSION [None]
  - OSTEOMYELITIS [None]
  - VIRAL INFECTION [None]
  - SIALOADENITIS [None]
  - SINUSITIS [None]
  - INJECTION SITE SWELLING [None]
  - INJECTION SITE PALLOR [None]
